FAERS Safety Report 8191987-2 (Version None)
Quarter: 2012Q1

REPORT INFORMATION
  Report Type: 
  Country: None (occurrence: None)
  Receive Date: 20120302
  Receipt Date: 20120228
  Transmission Date: 20120608
  Serious: No
  Sender: FDA-Public Use
  Company Number: US-PFIZER INC-2012053573

PATIENT
  Sex: Female
  Weight: 84.807 kg

DRUGS (7)
  1. WARFARIN [Concomitant]
     Indication: ANTICOAGULANT THERAPY
     Dosage: 5 MG, DAILY
  2. SYNTHROID [Concomitant]
     Indication: THYROID DISORDER
     Dosage: 150 UG, DAILY
  3. PROTONIX [Suspect]
     Indication: HIATUS HERNIA
     Dosage: 40 MG, DAILY
  4. PROTONIX [Suspect]
     Indication: GASTROOESOPHAGEAL REFLUX DISEASE
  5. DIOVAN [Concomitant]
     Indication: HYPERTENSION
     Dosage: 160 MG, DAILY
  6. PRAVASTATIN [Concomitant]
     Indication: BLOOD CHOLESTEROL INCREASED
     Dosage: 40 MG, DAILY
  7. PROCARDIA XL [Concomitant]
     Indication: HYPERTENSION
     Dosage: UNK

REACTIONS (4)
  - ABDOMINAL DISCOMFORT [None]
  - VOMITING [None]
  - NEUROPATHY PERIPHERAL [None]
  - SLEEP DISORDER [None]
